FAERS Safety Report 10758293 (Version 1)
Quarter: 2015Q1

REPORT INFORMATION
  Report Type: Spontaneous
  Country: US (occurrence: None)
  Receive Date: 20150202
  Receipt Date: 20150202
  Transmission Date: 20150721
  Serious: Yes (Disabling)
  Sender: FDA-Public Use
  Company Number: None

PATIENT
  Age: 56 Year
  Sex: Male
  Weight: 111 kg

DRUGS (4)
  1. PREDNISONE. [Concomitant]
     Active Substance: PREDNISONE
  2. DULERA INHALER [Concomitant]
  3. LANTUS [Concomitant]
     Active Substance: INSULIN GLARGINE
  4. AZITHROMYCIN [Suspect]
     Active Substance: AZITHROMYCIN ANHYDROUS
     Dosage: 2 TAB DAY 1, THEN 1 DAILY, QD, ORAL
     Route: 048
     Dates: start: 20150111, end: 20150115

REACTIONS (2)
  - Malaise [None]
  - Deafness [None]

NARRATIVE: CASE EVENT DATE: 20150115
